FAERS Safety Report 5894917-9 (Version None)
Quarter: 2008Q3

REPORT INFORMATION
  Report Type: 
  Country: None (occurrence: None)
  Receive Date: 20080924
  Receipt Date: 20080916
  Transmission Date: 20090109
  Serious: Yes (Other)
  Sender: FDA-Public Use
  Company Number: PHHY2008GB21784

PATIENT
  Sex: Female

DRUGS (1)
  1. AREDIA [Suspect]
     Dosage: TWO INFUSIONS

REACTIONS (3)
  - BALANCE DISORDER [None]
  - CATARACT [None]
  - GAIT DISTURBANCE [None]
